FAERS Safety Report 14236653 (Version 1)
Quarter: 2017Q4

REPORT INFORMATION
  Report Type: Report from Study
  Country: KR (occurrence: KR)
  Receive Date: 20171129
  Receipt Date: 20171129
  Transmission Date: 20180321
  Serious: Yes (Death, Hospitalization, Other)
  Sender: FDA-Public Use
  Company Number: KR-MYLANLABS-2017M1074864

PATIENT
  Age: 10 Year
  Sex: Male

DRUGS (8)
  1. IFOSFAMIDE. [Suspect]
     Active Substance: IFOSFAMIDE
     Indication: ATYPICAL TERATOID/RHABDOID TUMOUR OF CNS
     Dosage: PART OF REGIMEN-B CONVENTIONAL CHEMOTHERAPY; 3 CYCLES POST-RADIOTHERAPY
     Route: 065
  2. THIOTEPA. [Suspect]
     Active Substance: THIOTEPA
     Indication: ATYPICAL TERATOID/RHABDOID TUMOUR OF CNS
     Dosage: PART OF 1ST CYCLE OF HIGH CT
     Route: 065
  3. ETOPOSIDE. [Suspect]
     Active Substance: ETOPOSIDE
     Indication: ATYPICAL TERATOID/RHABDOID TUMOUR OF CNS
     Dosage: PART OF REGIMEN-A AND B CONVENTIONAL CHEMOTHERAPY;6 CYCLES POST-RADIOTHERAPY;1 CYCLE OF HIGH DOSE CT
     Route: 065
  4. MELPHALAN. [Suspect]
     Active Substance: MELPHALAN
     Indication: ATYPICAL TERATOID/RHABDOID TUMOUR OF CNS
     Dosage: PART OF 2ND CYCLE OF HIGH CT
     Route: 065
  5. VINCRISTINE [Suspect]
     Active Substance: VINCRISTINE
     Indication: ATYPICAL TERATOID/RHABDOID TUMOUR OF CNS
     Dosage: PART OF REGIMEN-A AND B CONVENTIONAL CHEMOTHERAPY; 6 CYCLES POST-RADIOTHERAPY
     Route: 065
  6. CISPLATIN. [Suspect]
     Active Substance: CISPLATIN
     Indication: ATYPICAL TERATOID/RHABDOID TUMOUR OF CNS
     Dosage: PART OF REGIMEN-A CONVENTIONAL CHEMOTHERAPY; 3 CYCLES POST-RADIOTHERAPY
     Route: 065
  7. CARBOPLATIN. [Suspect]
     Active Substance: CARBOPLATIN
     Indication: ATYPICAL TERATOID/RHABDOID TUMOUR OF CNS
     Dosage: PART OF REGIMEN-B CONVENTIONAL CHEMOTHERAPY; 3 CYCLES POST-RADIOTHERAPY; 1 CYCLE OF HIGH DOSE CT
     Route: 065
  8. CYCLOPHOSPHAMIDE. [Suspect]
     Active Substance: CYCLOPHOSPHAMIDE
     Indication: ATYPICAL TERATOID/RHABDOID TUMOUR OF CNS
     Dosage: PART OF REGIMEN-A CONVENTIONAL CHEMOTHERAPY;3 CYCLES POST-RADIOTHERAPY; 1 CYCLE OF HIGH DOSE CT
     Route: 065

REACTIONS (4)
  - Pneumonia [Fatal]
  - Acute respiratory failure [Fatal]
  - Multiple organ dysfunction syndrome [Fatal]
  - Sepsis [Fatal]
